FAERS Safety Report 9027993 (Version 1)
Quarter: 2013Q1

REPORT INFORMATION
  Report Type: Spontaneous
  Country: US (occurrence: None)
  Receive Date: 20130114
  Receipt Date: 20130114
  Transmission Date: 20140127
  Serious: Yes (Life-Threatening)
  Sender: FDA-Public Use
  Company Number: None

PATIENT
  Age: 73 Year
  Sex: Female
  Weight: 72.58 kg

DRUGS (1)
  1. NIFEDIPINE [Suspect]
     Indication: BLOOD PRESSURE
     Dosage: TAKE 1 TAB EVERY DAY
     Dates: start: 20121213, end: 20121216

REACTIONS (7)
  - Headache [None]
  - Joint swelling [None]
  - Local swelling [None]
  - Erythema [None]
  - Burning sensation [None]
  - Poor peripheral circulation [None]
  - Muscle spasms [None]
